FAERS Safety Report 4427024-2 (Version None)
Quarter: 2004Q3

REPORT INFORMATION
  Report Type: 
  Country: None (occurrence: None)
  Receive Date: 20040726
  Receipt Date: 20040422
  Transmission Date: 20050211
  Serious: No
  Sender: FDA-Public Use
  Company Number: USA040465580

PATIENT
  Sex: Female
  Weight: 51 kg

DRUGS (3)
  1. FORTEO [Suspect]
     Dosage: 20 UG/1 DAY
     Dates: start: 20040201
  2. LEVOXYL [Concomitant]
  3. CALCIUM [Concomitant]

REACTIONS (2)
  - LOSS OF LIBIDO [None]
  - WEIGHT INCREASED [None]
